FAERS Safety Report 16401059 (Version 1)
Quarter: 2019Q2

REPORT INFORMATION
  Report Type: Spontaneous
  Country: CN (occurrence: CN)
  Receive Date: 20190606
  Receipt Date: 20190606
  Transmission Date: 20190711
  Serious: Yes (Other)
  Sender: FDA-Public Use
  Company Number: CN-ALLERGAN-1923672US

PATIENT
  Sex: Female

DRUGS (1)
  1. ESCITALOPRAM OXALATE - BP [Suspect]
     Active Substance: ESCITALOPRAM OXALATE
     Indication: MATERNAL EXPOSURE TIMING UNSPECIFIED
     Dosage: UNK
     Route: 065

REACTIONS (2)
  - Pregnancy [Unknown]
  - Abortion induced [Unknown]
